FAERS Safety Report 18703332 (Version 2)
Quarter: 2021Q1

REPORT INFORMATION
  Report Type: Report from Study
  Country: US (occurrence: US)
  Receive Date: 20210105
  Receipt Date: 20210113
  Transmission Date: 20210419
  Serious: No
  Sender: FDA-Public Use
  Company Number: US-EISAI MEDICAL RESEARCH-EC-2020-083619

PATIENT
  Age: 72 Year
  Sex: Female

DRUGS (2)
  1. LENVIMA [Suspect]
     Active Substance: LENVATINIB
     Route: 048
     Dates: start: 2020
  2. LENVIMA [Suspect]
     Active Substance: LENVATINIB
     Indication: THYROID CANCER
     Route: 048
     Dates: start: 20201026, end: 2020

REACTIONS (9)
  - Headache [Unknown]
  - Hypertension [Unknown]
  - Transient ischaemic attack [Recovered/Resolved]
  - Grip strength decreased [Unknown]
  - Arthralgia [Unknown]
  - Hypoaesthesia [Unknown]
  - Mental status changes [Unknown]
  - Epistaxis [Unknown]
  - Pain [Unknown]

NARRATIVE: CASE EVENT DATE: 2020
